FAERS Safety Report 4691450-7 (Version None)
Quarter: 2005Q2

REPORT INFORMATION
  Report Type: 
  Country: None (occurrence: None)
  Receive Date: 20050613
  Receipt Date: 20050510
  Transmission Date: 20051028
  Serious: Yes (Hospitalization)
  Sender: FDA-Public Use
  Company Number: S05-USA-02568-01

PATIENT
  Age: 35 Year
  Sex: Female

DRUGS (27)
  1. LEXAPRO [Suspect]
     Indication: AGGRESSION
     Dates: start: 20030901
  2. LEXAPRO [Suspect]
     Indication: ANXIETY
     Dates: start: 20030901
  3. LEXAPRO [Suspect]
     Indication: POST-TRAUMATIC STRESS DISORDER
     Dates: start: 20030901
  4. LEXAPRO [Suspect]
     Indication: AGGRESSION
     Dosage: 2.5 MG QD PO
     Route: 048
     Dates: start: 20050201, end: 20050101
  5. LEXAPRO [Suspect]
     Indication: ANXIETY
     Dosage: 2.5 MG QD PO
     Route: 048
     Dates: start: 20050201, end: 20050101
  6. LEXAPRO [Suspect]
     Indication: POST-TRAUMATIC STRESS DISORDER
     Dosage: 2.5 MG QD PO
     Route: 048
     Dates: start: 20050201, end: 20050101
  7. LEXAPRO [Suspect]
     Indication: AGGRESSION
     Dosage: 5 MG QD PO
     Route: 048
     Dates: start: 20050101, end: 20050101
  8. LEXAPRO [Suspect]
     Indication: ANXIETY
     Dosage: 5 MG QD PO
     Route: 048
     Dates: start: 20050101, end: 20050101
  9. LEXAPRO [Suspect]
     Indication: POST-TRAUMATIC STRESS DISORDER
     Dosage: 5 MG QD PO
     Route: 048
     Dates: start: 20050101, end: 20050101
  10. LEXAPRO [Suspect]
     Indication: AGGRESSION
     Dosage: 30 MG QD PO
     Route: 048
     Dates: end: 20041101
  11. LEXAPRO [Suspect]
     Indication: ANXIETY
     Dosage: 30 MG QD PO
     Route: 048
     Dates: end: 20041101
  12. LEXAPRO [Suspect]
     Indication: POST-TRAUMATIC STRESS DISORDER
     Dosage: 30 MG QD PO
     Route: 048
     Dates: end: 20041101
  13. LEXAPRO [Suspect]
     Indication: AGGRESSION
     Dosage: 10 MG QD PO
     Route: 048
     Dates: start: 20050101, end: 20050101
  14. LEXAPRO [Suspect]
     Indication: ANXIETY
     Dosage: 10 MG QD PO
     Route: 048
     Dates: start: 20050101, end: 20050101
  15. LEXAPRO [Suspect]
     Indication: POST-TRAUMATIC STRESS DISORDER
     Dosage: 10 MG QD PO
     Route: 048
     Dates: start: 20050101, end: 20050101
  16. LEXAPRO [Suspect]
     Indication: AGGRESSION
     Dosage: 5 MG QD PO
     Route: 048
     Dates: start: 20050101, end: 20050101
  17. LEXAPRO [Suspect]
     Indication: ANXIETY
     Dosage: 5 MG QD PO
     Route: 048
     Dates: start: 20050101, end: 20050101
  18. LEXAPRO [Suspect]
     Indication: POST-TRAUMATIC STRESS DISORDER
     Dosage: 5 MG QD PO
     Route: 048
     Dates: start: 20050101, end: 20050101
  19. LEXAPRO [Suspect]
     Indication: AGGRESSION
     Dosage: 2.5 MG QD PO
     Route: 048
     Dates: start: 20050101
  20. LEXAPRO [Suspect]
     Indication: ANXIETY
     Dosage: 2.5 MG QD PO
     Route: 048
     Dates: start: 20050101
  21. LEXAPRO [Suspect]
     Indication: POST-TRAUMATIC STRESS DISORDER
     Dosage: 2.5 MG QD PO
     Route: 048
     Dates: start: 20050101
  22. CYTOMEL [Suspect]
     Indication: THYROIDITIS
     Dates: end: 20050301
  23. CYTOMEL [Suspect]
     Indication: THYROIDITIS
     Dates: start: 20050301
  24. ABILIFY [Suspect]
     Indication: AFFECTIVE DISORDER
     Dosage: 10 MG QD
     Dates: start: 20040101, end: 20050101
  25. ABILIFY [Suspect]
     Indication: AFFECTIVE DISORDER
     Dates: start: 20050101
  26. KLONOPIN [Suspect]
     Indication: ANXIETY
  27. STRATTERA [Concomitant]

REACTIONS (6)
  - ANGER [None]
  - DRUG INTERACTION [None]
  - INTENTIONAL MISUSE [None]
  - IRRITABILITY [None]
  - LETHARGY [None]
  - SUICIDAL IDEATION [None]
